FAERS Safety Report 16963220 (Version 1)
Quarter: 2019Q4

REPORT INFORMATION
  Report Type: Spontaneous
  Country: TH (occurrence: TH)
  Receive Date: 20191025
  Receipt Date: 20191025
  Transmission Date: 20200122
  Serious: Yes (Other)
  Sender: FDA-Public Use
  Company Number: TH-ASTRAZENECA-2019SF48613

PATIENT
  Age: 76 Year
  Sex: Male

DRUGS (8)
  1. DURVALUMAB. [Suspect]
     Active Substance: DURVALUMAB
     Indication: LUNG NEOPLASM MALIGNANT
     Dosage: CYCLE II OF DURVALUMAB
     Route: 042
     Dates: start: 20180104
  2. DURVALUMAB. [Suspect]
     Active Substance: DURVALUMAB
     Indication: LUNG NEOPLASM MALIGNANT
     Dosage: CYCLE XVI OF DURVALUMAB
     Route: 042
     Dates: start: 20190802
  3. DURVALUMAB. [Suspect]
     Active Substance: DURVALUMAB
     Indication: LUNG NEOPLASM MALIGNANT
     Route: 042
     Dates: start: 20181224
  4. DURVALUMAB. [Suspect]
     Active Substance: DURVALUMAB
     Indication: LUNG NEOPLASM MALIGNANT
     Dosage: CYCLE XIV OF DURVALUMAB
     Route: 042
     Dates: start: 20190701
  5. DEXAMETHASONE. [Concomitant]
     Active Substance: DEXAMETHASONE
  6. DURVALUMAB. [Suspect]
     Active Substance: DURVALUMAB
     Indication: LUNG NEOPLASM MALIGNANT
     Dosage: CYCLE XIII OF DURVALUMAB
     Route: 042
     Dates: start: 20190614
  7. DURVALUMAB. [Suspect]
     Active Substance: DURVALUMAB
     Indication: LUNG NEOPLASM MALIGNANT
     Dosage: CYCLE IV TO IX OF DURVALUMAB
     Route: 042
     Dates: start: 20190208, end: 20190419
  8. DURVALUMAB. [Suspect]
     Active Substance: DURVALUMAB
     Indication: LUNG NEOPLASM MALIGNANT
     Dosage: CYCLE III OF DURVALUMAB
     Route: 042
     Dates: start: 20180118

REACTIONS (8)
  - Pneumonitis [Recovered/Resolved]
  - Ventricular extrasystoles [Unknown]
  - Dyspnoea exertional [Unknown]
  - Supraventricular tachycardia [Unknown]
  - Cough [Unknown]
  - Supraventricular tachycardia [Recovered/Resolved]
  - Pyrexia [Unknown]
  - Syncope [Unknown]

NARRATIVE: CASE EVENT DATE: 20181225
